FAERS Safety Report 9850884 (Version 1)
Quarter: 2014Q1

REPORT INFORMATION
  Report Type: Report from Study
  Country: ES (occurrence: ES)
  Receive Date: 20140128
  Receipt Date: 20140128
  Transmission Date: 20141002
  Serious: Yes (Other)
  Sender: FDA-Public Use
  Company Number: ES-TEVA-458930USA

PATIENT
  Age: 60 Year
  Sex: Male

DRUGS (3)
  1. TREANDA [Suspect]
     Indication: PLASMA CELL MYELOMA
     Route: 042
     Dates: start: 20111226, end: 20120423
  2. VELCADE [Concomitant]
     Indication: PLASMA CELL MYELOMA
     Route: 042
     Dates: start: 20111226, end: 20120507
  3. PREDNISONE [Concomitant]
     Indication: PLASMA CELL MYELOMA
     Route: 048
     Dates: start: 20111226, end: 20120414

REACTIONS (1)
  - Blood stem cell harvest failure [Recovered/Resolved]
